FAERS Safety Report 5120153-X (Version None)
Quarter: 2006Q3

REPORT INFORMATION
  Report Type: 
  Country: None (occurrence: None)
  Receive Date: 20060928
  Receipt Date: 20060913
  Transmission Date: 20061208
  Serious: Yes (Other)
  Sender: FDA-Public Use
  Company Number: 14822

PATIENT
  Age: 62 Year

DRUGS (1)
  1. CARBOPLATIN [Suspect]

REACTIONS (2)
  - BLOOD CREATININE INCREASED [None]
  - THROMBOTIC THROMBOCYTOPENIC PURPURA [None]
